FAERS Safety Report 20370320 (Version 1)
Quarter: 2022Q1

REPORT INFORMATION
  Report Type: Spontaneous
  Country: US (occurrence: None)
  Receive Date: 20220123
  Receipt Date: 20220123
  Transmission Date: 20220423
  Serious: Yes (unspecified)
  Sender: FDA-Public Use
  Company Number: None

PATIENT
  Age: 73 Year
  Sex: Male
  Weight: 137.25 kg

DRUGS (1)
  1. CLOBETASOL [Suspect]
     Active Substance: CLOBETASOL

REACTIONS (4)
  - Cellulitis [None]
  - Walking aid user [None]
  - Recalled product [None]
  - Product contamination microbial [None]
